FAERS Safety Report 17386501 (Version 3)
Quarter: 2020Q3

REPORT INFORMATION
  Report Type: Report from Study
  Country: None (occurrence: DE)
  Receive Date: 20200206
  Receipt Date: 20200801
  Transmission Date: 20201102
  Serious: Yes (Hospitalization)
  Sender: FDA-Public Use
  Company Number: DE-ABBVIE-20K-062-3264137-00

PATIENT
  Age: 40 Year
  Sex: Female

DRUGS (3)
  1. MTX [METHOTREXATE SODIUM] [Concomitant]
     Active Substance: METHOTREXATE SODIUM
     Indication: PRODUCT USED FOR UNKNOWN INDICATION
     Dosage: BEFORE 24?MAR?2015?BETWEEN 05 APR 2016?1 1OCT 2016
     Route: 065
  2. HULIO [Concomitant]
     Active Substance: ADALIMUMAB-FKJP
     Indication: PRODUCT USED FOR UNKNOWN INDICATION
     Dates: start: 201904
  3. HUMIRA [Suspect]
     Active Substance: ADALIMUMAB
     Indication: RHEUMATOID ARTHRITIS
     Route: 058
     Dates: start: 201503, end: 20190329

REACTIONS (1)
  - Cervix carcinoma [Recovered/Resolved]

NARRATIVE: CASE EVENT DATE: 201902
